FAERS Safety Report 20152531 (Version 3)
Quarter: 2022Q2

REPORT INFORMATION
  Report Type: Spontaneous
  Country: US (occurrence: US)
  Receive Date: 20211206
  Receipt Date: 20220113
  Transmission Date: 20220720
  Serious: No
  Sender: FDA-Public Use
  Company Number: US-VERTEX PHARMACEUTICALS-2021-019055

PATIENT
  Sex: Female
  Weight: 65 kg

DRUGS (1)
  1. TRIKAFTA [Suspect]
     Active Substance: ELEXACAFTOR\IVACAFTOR\TEZACAFTOR
     Indication: Cystic fibrosis
     Dosage: 2 ORANGE TABS AM; 1 BLUE TAB PM
     Route: 048
     Dates: start: 20191209

REACTIONS (6)
  - Neurological symptom [Not Recovered/Not Resolved]
  - Sinus disorder [Unknown]
  - Depression [Not Recovered/Not Resolved]
  - Anxiety [Not Recovered/Not Resolved]
  - Feeling abnormal [Unknown]
  - Memory impairment [Unknown]

NARRATIVE: CASE EVENT DATE: 20210101
